FAERS Safety Report 18415561 (Version 2)
Quarter: 2021Q4

REPORT INFORMATION
  Report Type: Report from Study
  Country: DE (occurrence: DE)
  Receive Date: 20201022
  Receipt Date: 20211005
  Transmission Date: 20220303
  Serious: Yes (Hospitalization)
  Sender: FDA-Public Use
  Company Number: DE-ABBVIE-20K-062-3531841-00

PATIENT
  Age: 74 Year
  Sex: Male
  Weight: 87.2 kg

DRUGS (7)
  1. METHOTREXATE [Suspect]
     Active Substance: METHOTREXATE
     Indication: Product used for unknown indication
     Dosage: UNK
     Route: 058
     Dates: start: 2017, end: 2017
  2. HUMIRA [Suspect]
     Active Substance: ADALIMUMAB
     Indication: Psoriasis
     Dosage: 40 MILLIGRAM, BIWEEKLY
     Route: 058
     Dates: start: 20160217, end: 202007
  3. METOPROLOL SUCCINATE [Concomitant]
     Active Substance: METOPROLOL SUCCINATE
     Indication: Hypertension
     Dosage: 95 MILLIGRAM, QD
     Route: 048
     Dates: start: 20180511
  4. EFEROX [Concomitant]
     Active Substance: LEVOTHYROXINE SODIUM
     Indication: Thyroid disorder
     Dosage: 50 MILLIGRAM, QD
     Route: 048
     Dates: start: 20180511
  5. ASCORBIC ACID\ASPIRIN [Concomitant]
     Active Substance: ASCORBIC ACID\ASPIRIN
     Indication: Coronary artery disease
     Dosage: 160 MILLIGRAM, QD
     Route: 048
     Dates: start: 20180511
  6. VALSARTAN [Concomitant]
     Active Substance: VALSARTAN
     Indication: Hypertension
     Dosage: 80 MILLIGRAM, QD
     Route: 048
  7. TICAGRELOR [Concomitant]
     Active Substance: TICAGRELOR
     Indication: Cardiac failure
     Dosage: 180 MILLIGRAM, QD
     Route: 048
     Dates: start: 20180511

REACTIONS (14)
  - Swelling [Recovered/Resolved]
  - Nervous system disorder [Unknown]
  - Gout [Recovered/Resolved]
  - Urinary tract infection [Recovered/Resolved]
  - Platelet count decreased [Unknown]
  - Red blood cell count decreased [Unknown]
  - Haemoglobin decreased [Unknown]
  - Haematocrit decreased [Unknown]
  - Protein total increased [Unknown]
  - Oedema [Recovered/Resolved]
  - Gastrointestinal disorder [Unknown]
  - Pain in extremity [Recovered/Resolved]
  - Erythema [Recovered/Resolved]
  - Arthralgia [Unknown]

NARRATIVE: CASE EVENT DATE: 20190604
